FAERS Safety Report 5987697-X (Version None)
Quarter: 2008Q4

REPORT INFORMATION
  Report Type: 
  Country: None (occurrence: None)
  Receive Date: 20081209
  Receipt Date: 20081203
  Transmission Date: 20090506
  Serious: No
  Sender: FDA-Public Use
  Company Number: US-B.I. PHARMACEUTICALS,INC./RIDGEFIELD-2008-BP-18206BP

PATIENT
  Sex: Female

DRUGS (16)
  1. SPIRIVA [Suspect]
     Indication: CHRONIC OBSTRUCTIVE PULMONARY DISEASE
     Dosage: 18MCG
     Route: 055
     Dates: start: 20050101
  2. ADVAIR HFA [Concomitant]
  3. LISINOPRIL [Concomitant]
     Indication: HYPERTENSION
  4. XALATAN [Concomitant]
  5. DIGOXIN [Concomitant]
  6. DIOVAN [Concomitant]
  7. PAROXETINE HCL [Concomitant]
  8. EYE DROP [Concomitant]
  9. LORATADINE [Concomitant]
     Indication: HYPERSENSITIVITY
  10. THEO-24 [Concomitant]
  11. METFORMIN HCL [Concomitant]
     Indication: DIABETES MELLITUS
  12. LORAZEPAM [Concomitant]
  13. TEMAZEPAM [Concomitant]
  14. ASPIRIN [Concomitant]
  15. MAGNESIUM OXIDE [Concomitant]
  16. SIMVASTATIN [Concomitant]
     Indication: BLOOD CHOLESTEROL INCREASED

REACTIONS (3)
  - CATARACT [None]
  - GLAUCOMA [None]
  - UPPER LIMB FRACTURE [None]
